FAERS Safety Report 6667759-4 (Version None)
Quarter: 2010Q2

REPORT INFORMATION
  Report Type: 
  Country: None (occurrence: None)
  Receive Date: 20100405
  Receipt Date: 20100326
  Transmission Date: 20101027
  Serious: Yes (Other)
  Sender: FDA-Public Use
  Company Number: FR-PFIZER INC-2010039565

PATIENT
  Age: 82 Year
  Sex: Female

DRUGS (3)
  1. TAHOR [Suspect]
     Dosage: 10 MG, 1X/DAY
     Dates: start: 20070101
  2. KARDEGIC [Concomitant]
     Dosage: UNK
  3. BISOPROLOL [Concomitant]
     Dosage: 100 MG, UNK

REACTIONS (5)
  - ABDOMINAL PAIN UPPER [None]
  - FATIGUE [None]
  - MALAISE [None]
  - PAIN IN EXTREMITY [None]
  - VERTIGO [None]
